FAERS Safety Report 10602613 (Version 2)
Quarter: 2014Q4

REPORT INFORMATION
  Report Type: Spontaneous
  Country: US (occurrence: US)
  Receive Date: 20141124
  Receipt Date: 20141204
  Transmission Date: 20150529
  Serious: Yes (Hospitalization)
  Sender: FDA-Public Use
  Company Number: ALCN2014US006546

PATIENT
  Age: 12 Year
  Sex: Female

DRUGS (3)
  1. PATADAY [Suspect]
     Active Substance: OLOPATADINE HYDROCHLORIDE
     Indication: SEASONAL ALLERGY
     Dosage: 1 GTT, QD
     Route: 047
     Dates: start: 20140917, end: 20140917
  2. CLARITIN [Suspect]
     Active Substance: LORATADINE
     Indication: SEASONAL ALLERGY
     Dosage: 1 DF, QD
     Route: 048
     Dates: start: 20140917, end: 20140919
  3. PATADAY [Suspect]
     Active Substance: OLOPATADINE HYDROCHLORIDE
     Dosage: 1 GTT, BID
     Route: 047
     Dates: start: 20141118, end: 20141118

REACTIONS (3)
  - Eye abscess [Recovered/Resolved]
  - Folliculitis [Recovered/Resolved]
  - Cellulitis orbital [Recovered/Resolved]

NARRATIVE: CASE EVENT DATE: 20140919
